FAERS Safety Report 8222742-2 (Version None)
Quarter: 2012Q1

REPORT INFORMATION
  Report Type: 
  Country: None (occurrence: None)
  Receive Date: 20120320
  Receipt Date: 20120307
  Transmission Date: 20120608
  Serious: Yes (Other)
  Sender: FDA-Public Use
  Company Number: JP-FRI-1000028582

PATIENT
  Age: 33 Year
  Sex: Male
  Weight: 65 kg

DRUGS (8)
  1. FLUNITRAZEPAM [Concomitant]
     Dosage: 1 MG
     Route: 048
     Dates: start: 20111004, end: 20120213
  2. PODONIN-S [Concomitant]
     Route: 048
     Dates: start: 20111101, end: 20120110
  3. DOGMATYL [Concomitant]
     Dosage: 100 MG
     Route: 048
     Dates: start: 20111101
  4. LANSOPRAZOLE [Suspect]
     Dosage: 10 MG
     Route: 048
     Dates: start: 20111115, end: 20111216
  5. ABILIFY [Suspect]
     Dosage: 3 MG
     Route: 048
     Dates: start: 20120110, end: 20120123
  6. LEXAPRO [Suspect]
     Indication: DEPRESSION
     Dosage: 20 MG
     Route: 048
     Dates: start: 20111004, end: 20120130
  7. MEILAX [Concomitant]
     Dosage: 2 MG
     Route: 048
     Dates: start: 20111004
  8. RIZE [Concomitant]
     Route: 048
     Dates: start: 20111101, end: 20120110

REACTIONS (4)
  - HYPERTRIGLYCERIDAEMIA [None]
  - DECREASED APPETITE [None]
  - MALAISE [None]
  - LIVER DISORDER [None]
